FAERS Safety Report 25745118 (Version 1)
Quarter: 2025Q3

REPORT INFORMATION
  Report Type: Spontaneous
  Country: EU (occurrence: EU)
  Receive Date: 20250901
  Receipt Date: 20250901
  Transmission Date: 20251020
  Serious: Yes (Death, Other)
  Sender: NOVITIUM PHARMA
  Company Number: EU-NOVITIUMPHARMA-2025ITNVP02190

PATIENT
  Age: 58 Year
  Sex: Male

DRUGS (2)
  1. SILDENAFIL CITRATE [Suspect]
     Active Substance: SILDENAFIL CITRATE
     Indication: High risk sexual behaviour
  2. BENZOYLECGONINE [Concomitant]
     Active Substance: BENZOYLECGONINE
     Indication: Product used for unknown indication

REACTIONS (2)
  - Cerebral haemorrhage [Fatal]
  - Intracranial aneurysm [Fatal]
